FAERS Safety Report 8841969 (Version 2)
Quarter: 2012Q4

REPORT INFORMATION
  Report Type: 
  Country: ES (occurrence: ES)
  Receive Date: 20121016
  Receipt Date: 20121120
  Transmission Date: 20130627
  Serious: Yes (Other)
  Sender: FDA-Public Use
  Company Number: PHHY2012ES088923

PATIENT
  Age: 22 Year
  Sex: Male

DRUGS (9)
  1. PREDNISONE [Suspect]
     Dosage: 1 mg/kg, UNK
  2. MYCOPHENOLATE MOFETIL [Suspect]
     Dosage: 1-2 g, UNK
  3. METHYLPREDNISOLONE [Suspect]
     Dosage: Total dose 1250 mg
  4. TACROLIMUS [Suspect]
     Dosage: 1 mg, BID
  5. VALSARTAN [Suspect]
     Indication: HYPERTENSION
     Dosage: 160 mg, per day
  6. QUINAPRIL [Suspect]
     Indication: HYPERTENSION
     Dosage: 10 mg, daily
  7. QUINAPRIL [Suspect]
     Dosage: 10 mg, daily
  8. RITUXIMAB [Suspect]
     Dosage: 700 mg, per
  9. CANDESARTAN+HYDROCHLOROTHIAZIDE [Suspect]
     Indication: HYPERTENSION
     Dosage: 1 DF, (cand 16 mg, hydr 12.5 mg)

REACTIONS (5)
  - Bartter^s syndrome [Unknown]
  - Kidney fibrosis [Unknown]
  - Focal segmental glomerulosclerosis [Unknown]
  - Blood calcium decreased [Not Recovered/Not Resolved]
  - Vitamin D deficiency [Not Recovered/Not Resolved]
